FAERS Safety Report 16347265 (Version 1)
Quarter: 2019Q2

REPORT INFORMATION
  Report Type: Other
  Country: FR (occurrence: FR)
  Receive Date: 20190523
  Receipt Date: 20190523
  Transmission Date: 20190711
  Serious: Yes (Other)
  Sender: FDA-Public Use
  Company Number: FR-ASTELLAS-2019US021344

PATIENT
  Age: 50 Year
  Sex: Male

DRUGS (4)
  1. PROGRAF [Suspect]
     Active Substance: TACROLIMUS\TACROLIMUS ANHYDROUS
     Indication: LUNG TRANSPLANT
     Dosage: 5 MG, (2.5 MG IN THE MORNING AND IN THE EVENING)
     Route: 065
     Dates: end: 20190417
  2. HEPARINE SODIQUE [Suspect]
     Active Substance: HEPARIN SODIUM
     Indication: STENOSIS
     Dosage: 20000 UI/J, UNKNOWN FREQ.
     Route: 041
     Dates: start: 20190413, end: 20190419
  3. PROGRAF [Suspect]
     Active Substance: TACROLIMUS\TACROLIMUS ANHYDROUS
     Dosage: UNK UNK, UNKNOWN FREQ.
     Route: 065
  4. BACTRIM [Suspect]
     Active Substance: SULFAMETHOXAZOLE\TRIMETHOPRIM
     Indication: PROPHYLAXIS
     Dosage: 800/160 MG, THRICE WEEKLY
     Route: 048
     Dates: start: 20190412, end: 20190417

REACTIONS (2)
  - Renal tubular acidosis [Recovered/Resolved]
  - Product use in unapproved indication [Unknown]

NARRATIVE: CASE EVENT DATE: 20190413
